FAERS Safety Report 5532074-9 (Version None)
Quarter: 2007Q4

REPORT INFORMATION
  Report Type: 
  Country: None (occurrence: None)
  Receive Date: 20071203
  Receipt Date: 20071123
  Transmission Date: 20080405
  Serious: Yes (Hospitalization)
  Sender: FDA-Public Use
  Company Number: B0497525A

PATIENT
  Age: 85 Year
  Sex: Female

DRUGS (5)
  1. AUGMENTIN '125' [Suspect]
     Indication: SUPERINFECTION
     Dosage: 2SAC PER DAY
     Route: 048
     Dates: start: 20070910, end: 20070920
  2. SIMVASTATIN [Concomitant]
     Dosage: 20MG PER DAY
     Route: 048
  3. ACEBUTOLOL [Concomitant]
     Indication: HYPERTENSION
     Dosage: 200MG PER DAY
     Route: 048
  4. KARDEGIC [Concomitant]
     Route: 048
  5. MEBEVERINE [Concomitant]
     Dosage: 200MG PER DAY
     Route: 065

REACTIONS (4)
  - BLOOD ALKALINE PHOSPHATASE INCREASED [None]
  - GAMMA-GLUTAMYLTRANSFERASE INCREASED [None]
  - MIXED HEPATOCELLULAR-CHOLESTATIC INJURY [None]
  - TRANSAMINASES INCREASED [None]
